FAERS Safety Report 25259846 (Version 1)
Quarter: 2025Q2

REPORT INFORMATION
  Report Type: Spontaneous
  Country: CN (occurrence: CN)
  Receive Date: 20250501
  Receipt Date: 20250501
  Transmission Date: 20250717
  Serious: Yes (Other)
  Sender: ROCHE
  Company Number: CN-ROCHE-10000266518

PATIENT
  Age: 31 Year
  Sex: Female

DRUGS (8)
  1. CELLCEPT [Suspect]
     Active Substance: MYCOPHENOLATE MOFETIL
     Indication: Neuromyelitis optica spectrum disorder
     Route: 048
     Dates: start: 20230510
  2. SATRALIZUMAB [Suspect]
     Active Substance: SATRALIZUMAB
     Indication: Neuromyelitis optica spectrum disorder
     Route: 065
     Dates: start: 202402
  3. METHYLPREDNISOLONE [Concomitant]
     Active Substance: METHYLPREDNISOLONE
  4. PREDNISONE [Concomitant]
     Active Substance: PREDNISONE
     Route: 048
  5. COBAMAMIDE [Concomitant]
     Active Substance: COBAMAMIDE
     Indication: Pain
  6. POTASSIUM [Concomitant]
     Active Substance: POTASSIUM
     Indication: Pain
  7. CALCIUM [Concomitant]
     Active Substance: CALCIUM
     Indication: Pain
  8. GABAPENTIN [Concomitant]
     Active Substance: GABAPENTIN
     Indication: Pain

REACTIONS (2)
  - Neuromyelitis optica spectrum disorder [Unknown]
  - Off label use [Unknown]
